FAERS Safety Report 9361377 (Version 1)
Quarter: 2013Q2

REPORT INFORMATION
  Report Type: Spontaneous
  Country: DE (occurrence: DE)
  Receive Date: 20130621
  Receipt Date: 20130621
  Transmission Date: 20140414
  Serious: Yes (Other)
  Sender: FDA-Public Use
  Company Number: DE-JNJFOC-20130214671

PATIENT
  Age: 31 Year
  Sex: Female

DRUGS (6)
  1. REMICADE [Suspect]
     Indication: COLITIS ULCERATIVE
     Route: 042
     Dates: start: 20121220, end: 201302
  2. REMICADE [Suspect]
     Indication: COLITIS ULCERATIVE
     Route: 042
     Dates: start: 20121122
  3. REMICADE [Suspect]
     Indication: COLITIS ULCERATIVE
     Route: 042
     Dates: start: 20121108
  4. REMICADE [Suspect]
     Indication: COLITIS ULCERATIVE
     Route: 042
     Dates: start: 201305
  5. AZATHIOPRINE [Concomitant]
     Indication: COLITIS ULCERATIVE
     Route: 065
     Dates: start: 2009
  6. SALOFALK [Concomitant]
     Dosage: TOTAL DAILY DOSE: 3000MG
     Route: 065
     Dates: start: 2008

REACTIONS (1)
  - Carpal tunnel syndrome [Not Recovered/Not Resolved]
